FAERS Safety Report 9123742 (Version 1)
Quarter: 2013Q1

REPORT INFORMATION
  Report Type: Spontaneous
  Country: US (occurrence: US)
  Receive Date: 20130227
  Receipt Date: 20130227
  Transmission Date: 20140127
  Serious: Yes (Hospitalization)
  Sender: FDA-Public Use
  Company Number: US-PFIZER INC-2013064964

PATIENT
  Age: 64 Year
  Sex: Female

DRUGS (5)
  1. REVATIO [Suspect]
     Dosage: UNK
  2. LETAIRIS [Suspect]
     Indication: PULMONARY HYPERTENSION
     Dosage: 10 MG, 1X/DAY
     Dates: start: 20100719
  3. LETAIRIS [Suspect]
     Indication: CREST SYNDROME
  4. REMODULIN [Suspect]
     Dosage: UNK
  5. VENTAVIS [Concomitant]
     Dosage: UNK

REACTIONS (1)
  - Pulmonary arterial hypertension [Unknown]
